FAERS Safety Report 8481099-2 (Version None)
Quarter: 2012Q3

REPORT INFORMATION
  Report Type: 
  Country: None (occurrence: None)
  Receive Date: 20120702
  Receipt Date: 20120628
  Transmission Date: 20120928
  Serious: Yes (Hospitalization, Other)
  Sender: FDA-Public Use
  Company Number: PHHY2012MX055947

PATIENT
  Sex: Female

DRUGS (2)
  1. RASILEZ [Concomitant]
     Dosage: 1 DF, DAILY
  2. DIOVAN HCT [Suspect]
     Indication: HYPERTENSION
     Dosage: 1 DF, (80 MG VAL/ 12.5 MG HCT)

REACTIONS (1)
  - EYE DISORDER [None]
